FAERS Safety Report 18482138 (Version 1)
Quarter: 2020Q4

REPORT INFORMATION
  Report Type: Spontaneous
  Country: US (occurrence: US)
  Receive Date: 20201109
  Receipt Date: 20201109
  Transmission Date: 20210114
  Serious: Yes (Death, Other)
  Sender: FDA-Public Use
  Company Number: US-PURDUE-USA-2020-0173209

PATIENT
  Age: 29 Year
  Sex: Male

DRUGS (2)
  1. OXYCODONE HCL CR TABLETS (SIMILAR TO NDA 22-272) [Suspect]
     Active Substance: OXYCODONE HYDROCHLORIDE
     Indication: PRODUCT USED FOR UNKNOWN INDICATION
     Route: 048
  2. OXYCONTIN [Suspect]
     Active Substance: OXYCODONE HYDROCHLORIDE
     Indication: PRODUCT USED FOR UNKNOWN INDICATION
     Route: 048

REACTIONS (8)
  - Toxicity to various agents [Fatal]
  - Cardio-respiratory arrest [Fatal]
  - Pulmonary congestion [Fatal]
  - Brain oedema [Fatal]
  - Overdose [Unknown]
  - Pulmonary oedema [Fatal]
  - Hepatic necrosis [Fatal]
  - Drug dependence [Unknown]
